FAERS Safety Report 8978063 (Version 2)
Quarter: 2013Q1

REPORT INFORMATION
  Report Type: Spontaneous
  Country: FR (occurrence: FR)
  Receive Date: 20121221
  Receipt Date: 20130118
  Transmission Date: 20140127
  Serious: Yes (Other)
  Sender: FDA-Public Use
  Company Number: FR-JNJFOC-20121207033

PATIENT
  Age: 31 Year
  Sex: Female

DRUGS (1)
  1. EPITOMAX [Suspect]
     Indication: EPILEPSY
     Route: 048

REACTIONS (2)
  - Epilepsy [Unknown]
  - Exposure during pregnancy [Recovered/Resolved]
